FAERS Safety Report 7413615-3 (Version None)
Quarter: 2011Q2

REPORT INFORMATION
  Report Type: 
  Country: None (occurrence: None)
  Receive Date: 20110413
  Receipt Date: 20110404
  Transmission Date: 20111010
  Serious: Yes (Hospitalization, Other)
  Sender: FDA-Public Use
  Company Number: AU-AMGEN-KDC407958

PATIENT
  Age: 67 Year
  Sex: Male

DRUGS (16)
  1. METOPROLOL TARTRATE [Concomitant]
     Dosage: UNK UNK, UNK
     Route: 048
     Dates: start: 20100416
  2. TROPISETRON [Concomitant]
     Dosage: 5 MG, UNK
     Route: 042
     Dates: start: 20100414
  3. COENZYME Q10 [Concomitant]
     Dosage: UNK UNK, BID
     Route: 048
     Dates: start: 20100301
  4. ASCORBIC ACID [Concomitant]
     Dosage: UNK UNK, TID
     Route: 048
     Dates: start: 20100301
  5. APREPITANT [Concomitant]
     Dosage: UNK UNK, UNK
     Route: 048
     Dates: start: 20100414
  6. SELENIUM [Concomitant]
     Dosage: UNK UNK, QD
     Route: 048
     Dates: start: 20100301
  7. PANITUMUMAB [Suspect]
     Indication: GASTROOESOPHAGEAL CANCER
     Dosage: 666 MG, Q3WK
     Route: 042
     Dates: start: 20100413
  8. DOCETAXEL [Concomitant]
     Dosage: UNK UNK, UNK
     Dates: start: 20100413
  9. ECHINACEA EXTRACT [Concomitant]
     Dosage: UNK UNK, QD
     Route: 048
     Dates: start: 20100301
  10. ESOMEPRAZOLE MAGNESIUM [Concomitant]
     Dosage: 40 MG, QD
     Route: 048
     Dates: start: 20100324
  11. DEXAMETHASONE [Concomitant]
     Dosage: UNK UNK, UNK
     Dates: start: 20100413
  12. CISPLATIN [Concomitant]
     Dosage: UNK UNK, UNK
     Dates: start: 20100413
  13. LOVAZA [Concomitant]
     Dosage: 10 ML, BID
     Route: 048
     Dates: start: 20100301
  14. FLUOROPYRIMIDINE [Concomitant]
     Dosage: UNK UNK, UNK
     Dates: start: 20100413
  15. TOCOPHEROL CONCENTRATE CAP [Concomitant]
     Dosage: UNK UNK, QD
     Route: 048
     Dates: start: 20100301
  16. MULTI-VITAMINS [Concomitant]
     Dosage: UNK UNK, QD
     Route: 048
     Dates: start: 20100301

REACTIONS (2)
  - ORTHOSTATIC HYPOTENSION [None]
  - ATRIAL FLUTTER [None]
